FAERS Safety Report 4339947-3 (Version None)
Quarter: 2004Q2

REPORT INFORMATION
  Report Type: 
  Country: None (occurrence: None)
  Receive Date: 20040416
  Receipt Date: 20040406
  Transmission Date: 20050107
  Serious: Yes (Disabling)
  Sender: FDA-Public Use
  Company Number: GB-GLAXOSMITHKLINE-B0329259A

PATIENT
  Age: 36 Year
  Weight: 60 kg

DRUGS (2)
  1. ZYBAN [Suspect]
     Dosage: 150MG UNKNOWN
     Route: 048
     Dates: start: 20040116, end: 20040315
  2. DEPO-PROVERA [Concomitant]
     Dosage: 150MG PER DAY
     Route: 030
     Dates: start: 20000101

REACTIONS (5)
  - AFFECT LABILITY [None]
  - ANXIETY [None]
  - CRYING [None]
  - DRUG WITHDRAWAL SYNDROME [None]
  - PSYCHIATRIC SYMPTOM [None]
